FAERS Safety Report 8543148-2 (Version None)
Quarter: 2012Q3

REPORT INFORMATION
  Report Type: 
  Country: None (occurrence: None)
  Receive Date: 20120727
  Receipt Date: 20120530
  Transmission Date: 20120928
  Serious: No
  Sender: FDA-Public Use
  Company Number: US-MYLANLABS-2012S1011256

PATIENT
  Sex: Female

DRUGS (2)
  1. LEVOTHYROXINE SODIUM [Suspect]
     Indication: HYPOTHYROIDISM
     Route: 048
     Dates: start: 20120401
  2. TOPROL-XL [Concomitant]
     Indication: PALPITATIONS

REACTIONS (3)
  - LIP PAIN [None]
  - ALOPECIA [None]
  - LIP BLISTER [None]
